FAERS Safety Report 12285172 (Version 1)
Quarter: 2016Q2

REPORT INFORMATION
  Report Type: Spontaneous
  Country: US (occurrence: None)
  Receive Date: 20160419
  Receipt Date: 20160419
  Transmission Date: 20160815
  Serious: No
  Sender: FDA-Public Use
  Company Number: None

PATIENT
  Age: 44 Year
  Sex: Male
  Weight: 90.72 kg

DRUGS (1)
  1. LEVAQUIN [Suspect]
     Active Substance: LEVOFLOXACIN
     Indication: PROSTATITIS
     Route: 048
     Dates: start: 20160203, end: 20160217

REACTIONS (7)
  - Fall [None]
  - Muscle tightness [None]
  - Pain [None]
  - Hypoaesthesia [None]
  - Gait disturbance [None]
  - Muscle disorder [None]
  - Muscular weakness [None]

NARRATIVE: CASE EVENT DATE: 20160404
